FAERS Safety Report 7635543-0 (Version None)
Quarter: 2011Q3

REPORT INFORMATION
  Report Type: 
  Country: None (occurrence: None)
  Receive Date: 20110726
  Receipt Date: 20110712
  Transmission Date: 20111222
  Serious: Yes (Other)
  Sender: FDA-Public Use
  Company Number: US-ENDO PHARMACEUTICALS INC.-ENDC20110107

PATIENT
  Sex: Female

DRUGS (1)
  1. OXYCODONE AND ACETAMINOPHEN [Suspect]
     Indication: PAIN
     Dosage: 10/325 MG
     Route: 048
     Dates: start: 20110101

REACTIONS (5)
  - MALAISE [None]
  - ABDOMINAL PAIN [None]
  - HYPERHIDROSIS [None]
  - GAIT DISTURBANCE [None]
  - DECREASED APPETITE [None]
